FAERS Safety Report 24240534 (Version 1)
Quarter: 2024Q3

REPORT INFORMATION
  Report Type: Report from Study
  Country: GB (occurrence: GB)
  Receive Date: 20240822
  Receipt Date: 20240822
  Transmission Date: 20241017
  Serious: Yes (Other)
  Sender: SANDOZ
  Company Number: GB-002147023-NVSC2020GB217866

PATIENT
  Sex: Female

DRUGS (2)
  1. HYRIMOZ [Suspect]
     Active Substance: ADALIMUMAB-ADAZ
     Indication: Rheumatoid arthritis
     Dosage: 40 MG, Q2W, 40MG/0.8ML
     Route: 058
     Dates: start: 20200702
  2. HYRIMOZ [Suspect]
     Active Substance: ADALIMUMAB-ADAZ
     Dosage: 40 MG, Q2W,40MG/0.4ML
     Route: 058

REACTIONS (4)
  - Gastric ulcer [Unknown]
  - Injection site ulcer [Unknown]
  - Injection site infection [Unknown]
  - Rash [Recovering/Resolving]
